FAERS Safety Report 10958317 (Version 1)
Quarter: 2015Q1

REPORT INFORMATION
  Report Type: Spontaneous
  Country: BR (occurrence: BR)
  Receive Date: 20150326
  Receipt Date: 20150326
  Transmission Date: 20150721
  Serious: Yes (Other)
  Sender: FDA-Public Use
  Company Number: PHHY2015BR032233

PATIENT
  Age: 42 Year
  Sex: Male
  Weight: 76 kg

DRUGS (3)
  1. APRESOLINE HYDROCHLORIDE [Concomitant]
     Active Substance: HYDRALAZINE HYDROCHLORIDE
     Indication: HYPERTENSION
     Route: 048
  2. HIGROTON [Suspect]
     Active Substance: CHLORTHALIDONE
     Indication: HYPERTENSION
     Dosage: UNK OT, QD
     Route: 048
  3. DIOVAN AMLO FIX [Suspect]
     Active Substance: AMLODIPINE\VALSARTAN
     Indication: HYPERTENSION
     Dosage: UNK OT, QD
     Route: 048
     Dates: start: 2012, end: 201502

REACTIONS (2)
  - Blood pressure increased [Recovered/Resolved]
  - Generalised oedema [Recovered/Resolved]

NARRATIVE: CASE EVENT DATE: 201502
